FAERS Safety Report 5634024-3 (Version None)
Quarter: 2008Q1

REPORT INFORMATION
  Report Type: 
  Country: None (occurrence: None)
  Receive Date: 20080219
  Receipt Date: 20080131
  Transmission Date: 20080703
  Serious: Yes (Death)
  Sender: FDA-Public Use
  Company Number: 2008JP000584

PATIENT
  Age: 59 Year
  Sex: Male

DRUGS (9)
  1. PROGRAF [Suspect]
     Indication: LIVER TRANSPLANT
  2. MYCOPHENOLATE MOFETIL [Concomitant]
  3. AZATHIOPRINE [Concomitant]
  4. MEDROL (METHYLPREDNISOLONE) FORMULATION UNKNOWN [Concomitant]
  5. LAMIVUDINE (LAMIVUDINE) FORMULATION UNKNOWN [Concomitant]
  6. CYCLOSPORIN A FORMULATION UNKNOWN [Concomitant]
  7. PHENYTOIN SODIUM (PHENYTOIN SODIUM) FORMULATION UNKNOWN [Concomitant]
  8. CHLORAL HYDRATE (CHLORAL HYDRATE) ENEMA [Concomitant]
  9. LUMINAL SODIUM (PHENOBARBITAL SODIUM) FORMULATION UNKNOWN [Concomitant]

REACTIONS (6)
  - APHASIA [None]
  - CEREBRAL HAEMORRHAGE [None]
  - DYSPHAGIA [None]
  - EPILEPSY [None]
  - HEMIPARESIS [None]
  - RESTLESSNESS [None]
